FAERS Safety Report 6443036-1 (Version None)
Quarter: 2009Q4

REPORT INFORMATION
  Report Type: 
  Country: None (occurrence: None)
  Receive Date: 20091117
  Receipt Date: 20091106
  Transmission Date: 20100525
  Serious: Yes (Other)
  Sender: FDA-Public Use
  Company Number: US-AMGEN-US373375

PATIENT
  Age: 19 Year
  Sex: Female
  Weight: 69 kg

DRUGS (1)
  1. ENBREL [Suspect]
     Indication: ANKYLOSING SPONDYLITIS
     Route: 058

REACTIONS (3)
  - COGNITIVE DISORDER [None]
  - DEMYELINATION [None]
  - TREMOR [None]
